FAERS Safety Report 8861491 (Version 1)
Quarter: 2012Q4

REPORT INFORMATION
  Report Type: 
  Country: US (occurrence: US)
  Receive Date: 20121025
  Receipt Date: 20121025
  Transmission Date: 20130627
  Serious: No
  Sender: FDA-Public Use
  Company Number: US-AMGEN-USASP2012014751

PATIENT
  Age: 68 Year
  Sex: Female
  Weight: 133.79 kg

DRUGS (4)
  1. ENBREL [Suspect]
     Indication: PSORIASIS
     Dosage: 50 mg, qwk
     Route: 058
  2. ALLEGRA [Concomitant]
     Dosage: 180 mg, UNK
     Route: 048
  3. SYNTHROID [Concomitant]
     Dosage: 200 mug, UNK
     Route: 048
  4. BENICAR [Concomitant]
     Dosage: 40 mg, UNK
     Route: 048

REACTIONS (1)
  - Therapeutic response decreased [Unknown]
